FAERS Safety Report 15601377 (Version 1)
Quarter: 2018Q4

REPORT INFORMATION
  Report Type: Spontaneous
  Country: AU (occurrence: AU)
  Receive Date: 20181109
  Receipt Date: 20181109
  Transmission Date: 20190205
  Serious: Yes (Disabling)
  Sender: FDA-Public Use
  Company Number: None

PATIENT
  Age: 12 Year
  Sex: Female

DRUGS (1)
  1. SINGULAIR [Suspect]
     Active Substance: MONTELUKAST SODIUM
     Indication: ASTHMA
     Route: 048

REACTIONS (12)
  - Hallucination, auditory [None]
  - Anxiety [None]
  - Sleep terror [None]
  - Obsessive-compulsive disorder [None]
  - Abdominal pain upper [None]
  - Headache [None]
  - Thinking abnormal [None]
  - Dysgraphia [None]
  - Bruxism [None]
  - Anger [None]
  - Suicidal ideation [None]
  - Aggression [None]
